FAERS Safety Report 4462758-5 (Version None)
Quarter: 2004Q3

REPORT INFORMATION
  Report Type: 
  Country: None (occurrence: None)
  Receive Date: 20040927
  Receipt Date: 20040922
  Transmission Date: 20050211
  Serious: Yes (Hospitalization)
  Sender: FDA-Public Use
  Company Number: US-SHR-03-014583

PATIENT
  Sex: Male
  Weight: 90.7 kg

DRUGS (1)
  1. MAGNEVIST [Suspect]
     Indication: NUCLEAR MAGNETIC RESONANCE IMAGING
     Dosage: 20 ML, 1 DOSE, INTRAVENOUS
     Route: 042
     Dates: start: 20030801, end: 20030801

REACTIONS (8)
  - COLLAPSE OF LUNG [None]
  - COUGH [None]
  - DYSPNOEA [None]
  - HEART RATE DECREASED [None]
  - REFUSAL OF TREATMENT BY PATIENT [None]
  - SNEEZING [None]
  - TUBERCULOSIS [None]
  - URTICARIA [None]
